FAERS Safety Report 11395835 (Version 1)
Quarter: 2015Q3

REPORT INFORMATION
  Report Type: Spontaneous
  Country: US (occurrence: US)
  Receive Date: 20150819
  Receipt Date: 20150819
  Transmission Date: 20151125
  Serious: Yes (Disabling)
  Sender: FDA-Public Use
  Company Number: US-JNJFOC-20150607303

PATIENT
  Age: 30 Year
  Sex: Male
  Weight: 108.86 kg

DRUGS (3)
  1. SEROQUEL [Concomitant]
     Active Substance: QUETIAPINE FUMARATE
     Indication: MANIA
     Dosage: (EITHER 600 OR 700MG).
     Route: 065
  2. INVEGA SUSTENNA [Suspect]
     Active Substance: PALIPERIDONE PALMITATE
     Indication: BIPOLAR I DISORDER
     Route: 030
     Dates: start: 2015
  3. ATIVAN [Concomitant]
     Active Substance: LORAZEPAM
     Indication: PRODUCT USED FOR UNKNOWN INDICATION
     Route: 065

REACTIONS (8)
  - Somnolence [Unknown]
  - Lethargy [Unknown]
  - Vomiting [Unknown]
  - Off label use [Unknown]
  - Depression [Unknown]
  - Sedation [Not Recovered/Not Resolved]
  - Dysarthria [Unknown]
  - Nausea [Unknown]

NARRATIVE: CASE EVENT DATE: 2015
